FAERS Safety Report 23912946 (Version 1)
Quarter: 2024Q2

REPORT INFORMATION
  Report Type: Spontaneous
  Country: US (occurrence: US)
  Receive Date: 20240529
  Receipt Date: 20240529
  Transmission Date: 20240716
  Serious: Yes (Other)
  Sender: FDA-Public Use
  Company Number: US-BRISTOL-MYERS SQUIBB COMPANY-2024-084032

PATIENT
  Age: 88 Year
  Sex: Female

DRUGS (2)
  1. ELIQUIS [Suspect]
     Active Substance: APIXABAN
     Indication: Product used for unknown indication
     Route: 048
  2. CALCIUM\VITAMINS [Concomitant]
     Active Substance: CALCIUM\VITAMINS
     Indication: Product used for unknown indication

REACTIONS (2)
  - Drug intolerance [Unknown]
  - Nephrolithiasis [Unknown]
